FAERS Safety Report 10107055 (Version 2)
Quarter: 2014Q2

REPORT INFORMATION
  Report Type: Other
  Country: US (occurrence: US)
  Receive Date: 20140424
  Receipt Date: 20140623
  Transmission Date: 20141212
  Serious: Yes (Hospitalization, Other)
  Sender: FDA-Public Use
  Company Number: US-GSKPPD-2014GSK002249

PATIENT
  Age: 58 Year
  Sex: Female

DRUGS (7)
  1. AVANDIA [Suspect]
     Indication: DIABETES MELLITUS
     Route: 048
     Dates: start: 200510
  2. AVANDAMET [Suspect]
     Indication: DIABETES MELLITUS
     Dosage: 4 MG-500 MG
     Route: 048
     Dates: end: 20101205
  3. TOPROL XL [Concomitant]
     Dosage: DAY
  4. BUMEX [Concomitant]
     Dosage: DAY
  5. ASPIRIN [Concomitant]
     Dosage: PER DAY
  6. PLAVIX [Concomitant]
     Dosage: DAY
  7. LEXAPRO [Concomitant]
     Dosage: DAY

REACTIONS (1)
  - Myocardial infarction [Recovered/Resolved]
